FAERS Safety Report 24238513 (Version 1)
Quarter: 2024Q3

REPORT INFORMATION
  Report Type: Spontaneous
  Country: DE (occurrence: DE)
  Receive Date: 20240822
  Receipt Date: 20240822
  Transmission Date: 20241017
  Serious: Yes (Other)
  Sender: BAYER
  Company Number: DE-BAYER-2024A119055

PATIENT
  Age: 84 Year
  Sex: Female

DRUGS (1)
  1. ANGELIQ [Suspect]
     Active Substance: DROSPIRENONE\ESTRADIOL
     Route: 048

REACTIONS (3)
  - Colitis microscopic [None]
  - Blood pressure increased [None]
  - Hot flush [None]
